FAERS Safety Report 22376231 (Version 1)
Quarter: 2023Q2

REPORT INFORMATION
  Report Type: Spontaneous
  Country: CN (occurrence: CN)
  Receive Date: 20230527
  Receipt Date: 20230527
  Transmission Date: 20230722
  Serious: Yes (Hospitalization, Other)
  Sender: FDA-Public Use
  Company Number: CN-JUBILANT CADISTA PHARMACEUTICALS-2023CN000449

PATIENT
  Age: 68 Year
  Sex: Female

DRUGS (3)
  1. LEVOFLOXACIN [Suspect]
     Active Substance: LEVOFLOXACIN
     Indication: Product used for unknown indication
     Dosage: UNK,  UNK
  2. CARBAMAZEPINE [Suspect]
     Active Substance: CARBAMAZEPINE
     Indication: Post herpetic neuralgia
     Dosage: UNK,  UNK
  3. EBASTINE [Suspect]
     Active Substance: EBASTINE
     Indication: Product used for unknown indication
     Dosage: UNK,  UNK

REACTIONS (11)
  - AGEP-DRESS overlap [Recovering/Resolving]
  - Pyrexia [Recovering/Resolving]
  - Flushing [Recovering/Resolving]
  - Enanthema [Recovering/Resolving]
  - Rash [Recovering/Resolving]
  - Mucosal inflammation [Recovering/Resolving]
  - Mucosal erosion [Recovering/Resolving]
  - Rash erythematous [Recovering/Resolving]
  - Pustule [Recovering/Resolving]
  - Purpura [Recovering/Resolving]
  - Papule [Recovering/Resolving]
